FAERS Safety Report 8055560-9 (Version None)
Quarter: 2011Q4

REPORT INFORMATION
  Report Type: 
  Country: None (occurrence: None)
  Receive Date: 20111213
  Receipt Date: 20110825
  Transmission Date: 20120403
  Serious: Yes (Other)
  Sender: FDA-Public Use
  Company Number: 2011SP040382

PATIENT
  Age: 29 Year
  Sex: Female

DRUGS (1)
  1. SAPHRIS [Suspect]
     Indication: BIPOLAR DISORDER
     Dates: start: 20110824, end: 20110824

REACTIONS (3)
  - HYPOAESTHESIA ORAL [None]
  - GAIT DISTURBANCE [None]
  - SWOLLEN TONGUE [None]
